FAERS Safety Report 5261174-6 (Version None)
Quarter: 2007Q1

REPORT INFORMATION
  Report Type: 
  Country: None (occurrence: None)
  Receive Date: 20070309
  Receipt Date: 20070227
  Transmission Date: 20070707
  Serious: Yes (Hospitalization, Other)
  Sender: FDA-Public Use
  Company Number: JP-PFIZER INC-2007010534

PATIENT
  Age: 78 Year
  Sex: Female

DRUGS (2)
  1. VFEND [Suspect]
     Indication: CANDIDA SEROLOGY POSITIVE
     Dosage: DAILY DOSE:600MG
     Route: 048
     Dates: start: 20070126, end: 20070127
  2. VFEND [Suspect]
     Dosage: DAILY DOSE:200MG
     Route: 048

REACTIONS (1)
  - DEPRESSED LEVEL OF CONSCIOUSNESS [None]
